FAERS Safety Report 17815965 (Version 1)
Quarter: 2020Q2

REPORT INFORMATION
  Report Type: Spontaneous
  Country: US (occurrence: US)
  Receive Date: 20200522
  Receipt Date: 20200522
  Transmission Date: 20200714
  Serious: No
  Sender: FDA-Public Use
  Company Number: US-MYLANLABS-2020M1048293

PATIENT
  Sex: Male
  Weight: 104 kg

DRUGS (2)
  1. GLATIRAMER [Suspect]
     Active Substance: GLATIRAMER
     Indication: MULTIPLE SCLEROSIS
     Dosage: 40 MILLIGRAM, 3XW
     Route: 058
     Dates: start: 201901
  2. MODAFINIL. [Concomitant]
     Active Substance: MODAFINIL
     Indication: FATIGUE
     Dosage: 2 DOSAGE FORM, QD

REACTIONS (1)
  - Drug administered in wrong device [Unknown]
